FAERS Safety Report 4539598-1 (Version None)
Quarter: 2004Q4

REPORT INFORMATION
  Report Type: 
  Country: None (occurrence: None)
  Receive Date: 20041228
  Receipt Date: 20041208
  Transmission Date: 20050328
  Serious: Yes (Other)
  Sender: FDA-Public Use
  Company Number: PHBS2004JP16603

PATIENT
  Age: 40 Year
  Sex: Male

DRUGS (4)
  1. CLOBAZAM [Suspect]
     Indication: TEMPORAL LOBE EPILEPSY
     Dosage: 20 MG/DAY
  2. PHENYTOIN [Concomitant]
     Indication: TEMPORAL LOBE EPILEPSY
     Dosage: UNK, UNK
  3. CARBAMAZEPINE [Suspect]
     Indication: TEMPORAL LOBE EPILEPSY
     Dosage: 800 MG/DAY
  4. CARBAMAZEPINE [Suspect]
     Dosage: 1000 MG/DAY

REACTIONS (2)
  - ABNORMAL BEHAVIOUR [None]
  - EXCITABILITY [None]
